FAERS Safety Report 6237828-1 (Version None)
Quarter: 2009Q2

REPORT INFORMATION
  Report Type: 
  Country: None (occurrence: None)
  Receive Date: 20090617
  Receipt Date: 20090611
  Transmission Date: 20091009
  Serious: Yes (Other)
  Sender: FDA-Public Use
  Company Number: A0790379A

PATIENT
  Sex: Female

DRUGS (1)
  1. UREA PEROXIDE [Suspect]
     Indication: CERUMEN REMOVAL
     Dosage: AURAL
     Dates: start: 20090609

REACTIONS (1)
  - DEAFNESS [None]
